FAERS Safety Report 18459860 (Version 1)
Quarter: 2020Q4

REPORT INFORMATION
  Report Type: Spontaneous
  Country: TR (occurrence: TR)
  Receive Date: 20201104
  Receipt Date: 20201104
  Transmission Date: 20210114
  Serious: Yes (Hospitalization, Other)
  Sender: FDA-Public Use
  Company Number: TR-MACLEODS PHARMACEUTICALS US LTD-MAC2020028877

PATIENT

DRUGS (3)
  1. MODAFINIL. [Interacting]
     Active Substance: MODAFINIL
     Indication: DEPRESSION
     Dosage: 100 MILLIGRAM, QD
     Route: 065
  2. DULOXETINE 30 MG [Suspect]
     Active Substance: DULOXETINE
     Indication: DEPRESSION
     Dosage: 30 MILLIGRAM, QD
     Route: 065
  3. BLACK COHOSH ROOT DRY EXTRACT (ETHANOL 60% V/V), DER NATIVE 4,5-8,5:1 [Interacting]
     Active Substance: BLACK COHOSH
     Indication: PREMENSTRUAL SYNDROME
     Dosage: 40 MILLIGRAM, QD
     Route: 065

REACTIONS (2)
  - Mania [Recovered/Resolved]
  - Drug interaction [Recovered/Resolved]
